FAERS Safety Report 8994434 (Version 1)
Quarter: 2012Q4

REPORT INFORMATION
  Report Type: Spontaneous
  Country: US (occurrence: None)
  Receive Date: 20121228
  Receipt Date: 20121228
  Transmission Date: 20130627
  Serious: Yes (Hospitalization)
  Sender: FDA-Public Use
  Company Number: None

PATIENT
  Age: 83 Year
  Sex: Male
  Weight: 67.7 kg

DRUGS (2)
  1. CIPROFLOXACIN [Suspect]
     Indication: UTI
     Dates: start: 20121101, end: 20121110
  2. CIPROFLOXACIN [Suspect]
     Indication: UTI
     Route: 042
     Dates: start: 20121111, end: 20121111

REACTIONS (1)
  - Myoclonus [None]
